FAERS Safety Report 4668820-6 (Version None)
Quarter: 2005Q2

REPORT INFORMATION
  Report Type: 
  Country: None (occurrence: None)
  Receive Date: 20050519
  Receipt Date: 20050504
  Transmission Date: 20051028
  Serious: No
  Sender: FDA-Public Use
  Company Number: 11044

PATIENT

DRUGS (4)
  1. CISPLATIN [Suspect]
     Indication: OESOPHAGEAL CARCINOMA
     Dosage: 80 MG/M2 OTH
     Route: 042
  2. FOLINIC ACID [Suspect]
     Indication: OESOPHAGEAL CARCINOMA
     Dosage: 30 MG OTH
     Route: 048
  3. URACIL [Suspect]
     Indication: OESOPHAGEAL CARCINOMA
     Route: 048
  4. TEGAFUR [Suspect]
     Indication: OESOPHAGEAL CARCINOMA
     Route: 048

REACTIONS (3)
  - ANOREXIA [None]
  - DYSPHAGIA [None]
  - FATIGUE [None]
